FAERS Safety Report 5087194-2 (Version None)
Quarter: 2006Q3

REPORT INFORMATION
  Report Type: 
  Country: None (occurrence: None)
  Receive Date: 20060821
  Receipt Date: 20060817
  Transmission Date: 20061208
  Serious: Yes (Other)
  Sender: FDA-Public Use
  Company Number: CA-2005-014857

PATIENT
  Sex: Female

DRUGS (1)
  1. YASMIN [Suspect]
     Dosage: ORAL
     Route: 048

REACTIONS (4)
  - AMNESIA [None]
  - BLOOD GLUCOSE DECREASED [None]
  - DEPRESSION SUICIDAL [None]
  - HALLUCINATION [None]
